FAERS Safety Report 6042517-2 (Version None)
Quarter: 2009Q1

REPORT INFORMATION
  Report Type: 
  Country: None (occurrence: None)
  Receive Date: 20090116
  Receipt Date: 20090112
  Transmission Date: 20090719
  Serious: Yes (Other)
  Sender: FDA-Public Use
  Company Number: DE-JNJCH-2008058309

PATIENT
  Sex: Female
  Weight: 63 kg

DRUGS (3)
  1. ROGAINE [Suspect]
     Indication: ALOPECIA
     Dosage: TEXT:UNKNOWN TWICE A DAY
     Route: 061
     Dates: start: 20081223, end: 20081227
  2. BUDESONIDE [Concomitant]
     Indication: DRUG USE FOR UNKNOWN INDICATION
     Dosage: TEXT:UNKNOWN DAILY
     Route: 055
  3. ACETYLCYSTEINE [Concomitant]
     Indication: DRUG USE FOR UNKNOWN INDICATION
     Dosage: TEXT:600 MG DAILY
     Route: 065

REACTIONS (13)
  - APPLICATION SITE PRURITUS [None]
  - CARDIOVASCULAR DISORDER [None]
  - CONSTIPATION [None]
  - COUGH [None]
  - DECREASED ACTIVITY [None]
  - DEPRESSION [None]
  - FATIGUE [None]
  - HAEMATOCHEZIA [None]
  - HEADACHE [None]
  - INSOMNIA [None]
  - NAUSEA [None]
  - PAIN [None]
  - PYREXIA [None]
